FAERS Safety Report 25529867 (Version 1)
Quarter: 2025Q3

REPORT INFORMATION
  Report Type: Spontaneous
  Country: US (occurrence: None)
  Receive Date: 20250708
  Receipt Date: 20250708
  Transmission Date: 20251021
  Serious: Yes (Hospitalization)
  Sender: FDA-CTU
  Company Number: None

PATIENT
  Age: 79 Year
  Sex: Female
  Weight: 59.4 kg

DRUGS (1)
  1. REPATHA [Suspect]
     Active Substance: EVOLOCUMAB
     Indication: Blood cholesterol
     Dates: start: 20250313, end: 20250328

REACTIONS (4)
  - Muscle spasms [None]
  - Headache [None]
  - Neck pain [None]
  - Therapy cessation [None]

NARRATIVE: CASE EVENT DATE: 20250405
